FAERS Safety Report 6010233-9 (Version None)
Quarter: 2008Q4

REPORT INFORMATION
  Report Type: 
  Country: None (occurrence: None)
  Receive Date: 20081218
  Receipt Date: 20080129
  Transmission Date: 20090506
  Serious: No
  Sender: FDA-Public Use
  Company Number: A0706171A

PATIENT
  Sex: Male

DRUGS (3)
  1. FLONASE [Suspect]
     Indication: NASAL CONGESTION
     Dosage: 4SPR PER DAY
     Route: 045
     Dates: start: 20070401
  2. FLUTICASONE PROPIONATE [Suspect]
     Indication: NASAL CONGESTION
     Dosage: 4SPR PER DAY
     Route: 045
     Dates: start: 20070601, end: 20070701
  3. NONE [Concomitant]

REACTIONS (4)
  - ADVERSE EVENT [None]
  - ASTHENIA [None]
  - PERFORMANCE STATUS DECREASED [None]
  - SPEECH DISORDER [None]
